FAERS Safety Report 18277382 (Version 4)
Quarter: 2021Q2

REPORT INFORMATION
  Report Type: Report from Study
  Country: CO (occurrence: CO)
  Receive Date: 20200917
  Receipt Date: 20210603
  Transmission Date: 20210717
  Serious: Yes (Hospitalization, Other)
  Sender: FDA-Public Use
  Company Number: PHHY2018CO154778

PATIENT
  Age: 12 Year
  Sex: Male
  Weight: 45 kg

DRUGS (3)
  1. REVOLADE [Suspect]
     Active Substance: ELTROMBOPAG OLAMINE
     Dosage: UNK
     Route: 048
  2. REVOLADE [Suspect]
     Active Substance: ELTROMBOPAG OLAMINE
     Indication: IMMUNE THROMBOCYTOPENIA
     Dosage: 75 MG, QD (25 MG IN MORNING, AFTERNOON AND EVENING) (3 OF 25 MG, ONE YEAR AGO)
     Route: 048
  3. PREDNISOLONE. [Concomitant]
     Active Substance: PREDNISOLONE
     Indication: IMMUNE THROMBOCYTOPENIA
     Dosage: 1 UNK, QD (STARTED ONE YEAR AGO TO 3 MONTHS AGO)
     Route: 048

REACTIONS (8)
  - Disease recurrence [Unknown]
  - Fatigue [Unknown]
  - Haematoma [Unknown]
  - Contusion [Unknown]
  - Platelet count decreased [Unknown]
  - Thermal burn [Unknown]
  - Petechiae [Not Recovered/Not Resolved]
  - Haemorrhage [Unknown]

NARRATIVE: CASE EVENT DATE: 20200826
